FAERS Safety Report 6384763-4 (Version None)
Quarter: 2009Q4

REPORT INFORMATION
  Report Type: 
  Country: None (occurrence: None)
  Receive Date: 20091001
  Receipt Date: 20090916
  Transmission Date: 20100525
  Serious: Yes (Other)
  Sender: FDA-Public Use
  Company Number: IT-GENENTECH-290845

PATIENT
  Sex: Female

DRUGS (3)
  1. AVASTIN [Suspect]
     Indication: BREAST CANCER METASTATIC
     Dosage: 1 DF, UNK
     Route: 042
     Dates: start: 20080301, end: 20080731
  2. ZOMETA [Suspect]
     Indication: BREAST CANCER
     Dosage: 4 MG, 1/MONTH
     Route: 042
     Dates: start: 20080301, end: 20080630
  3. VINORELBINE [Concomitant]
     Indication: DRUG USE FOR UNKNOWN INDICATION
     Dosage: UNK
     Dates: start: 20080701, end: 20080801

REACTIONS (2)
  - DISEASE PROGRESSION [None]
  - OSTEONECROSIS [None]
